FAERS Safety Report 7469359-5 (Version None)
Quarter: 2011Q2

REPORT INFORMATION
  Report Type: 
  Country: None (occurrence: None)
  Receive Date: 20110510
  Receipt Date: 20110406
  Transmission Date: 20111010
  Serious: Yes (Hospitalization, Other)
  Sender: FDA-Public Use
  Company Number: US-BAYER-201027111NA

PATIENT
  Age: 25 Year
  Sex: Female
  Weight: 75 kg

DRUGS (8)
  1. BAKING SODA [Concomitant]
     Indication: NAUSEA
     Dosage: UNK
     Dates: start: 20080801, end: 20081001
  2. ROLAIDS [Concomitant]
     Indication: DYSPEPSIA
  3. BAKING SODA [Concomitant]
     Indication: DYSPEPSIA
  4. ROLAIDS [Concomitant]
     Indication: NAUSEA
     Dosage: UNK UNK, PRN
     Dates: start: 20050801, end: 20051001
  5. YAZ [Suspect]
     Indication: PRODUCT USED FOR UNKNOWN INDICATION
     Dosage: UNK UNK, UNK
     Route: 048
     Dates: start: 20070101, end: 20090101
  6. YASMIN [Suspect]
     Indication: PRODUCT USED FOR UNKNOWN INDICATION
     Dosage: UNK UNK, UNK
     Route: 048
     Dates: start: 20030101, end: 20061201
  7. MYLANTA AR [Concomitant]
     Indication: NAUSEA
     Dosage: UNK UNK, PRN
     Dates: start: 20050801, end: 20051001
  8. MYLANTA AR [Concomitant]
     Indication: DYSPEPSIA

REACTIONS (4)
  - ABDOMINAL PAIN UPPER [None]
  - ERUCTATION [None]
  - CHOLECYSTITIS [None]
  - NAUSEA [None]
